FAERS Safety Report 8588872-0 (Version None)
Quarter: 2012Q3

REPORT INFORMATION
  Report Type: 
  Country: None (occurrence: None)
  Receive Date: 20120803
  Receipt Date: 20120803
  Transmission Date: 20120928
  Serious: Yes (Hospitalization)
  Sender: FDA-Public Use
  Company Number: None

PATIENT
  Age: 43 Year
  Sex: Female
  Weight: 64.9 kg

DRUGS (10)
  1. DEXAMETHASONE [Concomitant]
  2. HERCEPTIN [Suspect]
     Indication: BREAST CANCER
     Dosage: 139 MG
  3. ATIVAN [Concomitant]
  4. LOMOTIL [Concomitant]
  5. GABAPENTIN [Concomitant]
  6. ONDANSETRON HCL [Concomitant]
  7. VICODIN [Concomitant]
  8. CARBOPLATIN [Suspect]
     Indication: BREAST CANCER
     Dosage: 675 MG
  9. PANTOPRAZOLE [Concomitant]
  10. ABRAXANE [Suspect]
     Indication: BREAST CANCER
     Dosage: 177 MG

REACTIONS (14)
  - DIARRHOEA HAEMORRHAGIC [None]
  - WHITE BLOOD CELL COUNT DECREASED [None]
  - GASTROINTESTINAL TOXICITY [None]
  - ABDOMINAL PAIN [None]
  - EPISTAXIS [None]
  - NAUSEA [None]
  - BLOOD POTASSIUM DECREASED [None]
  - CLOSTRIDIAL INFECTION [None]
  - VOMITING [None]
  - NO THERAPEUTIC RESPONSE [None]
  - HAEMOGLOBIN DECREASED [None]
  - DEHYDRATION [None]
  - HAEMATEMESIS [None]
  - HAEMORRHOIDS [None]
